FAERS Safety Report 4981090-4 (Version None)
Quarter: 2006Q2

REPORT INFORMATION
  Report Type: 
  Country: None (occurrence: None)
  Receive Date: 20060424
  Receipt Date: 20060419
  Transmission Date: 20061013
  Serious: Yes (Hospitalization)
  Sender: FDA-Public Use
  Company Number: IT-BRISTOL-MYERS SQUIBB COMPANY-13352950

PATIENT
  Age: 90 Year
  Sex: Female

DRUGS (8)
  1. COUMADIN [Suspect]
     Indication: DEEP VEIN THROMBOSIS
     Route: 048
     Dates: start: 20060403, end: 20060407
  2. MINITRAN [Concomitant]
  3. DILATREND [Concomitant]
  4. MEPRAL [Concomitant]
  5. ZYLORIC [Concomitant]
  6. ELOPRAM [Concomitant]
  7. POTASSIUM CHLORIDE [Concomitant]
  8. CIPROXIN [Concomitant]

REACTIONS (4)
  - ANAEMIA [None]
  - HAEMATOMA [None]
  - HAEMATURIA [None]
  - PROTHROMBIN TIME PROLONGED [None]
